FAERS Safety Report 16686314 (Version 1)
Quarter: 2019Q3

REPORT INFORMATION
  Report Type: Spontaneous
  Country: JP (occurrence: JP)
  Receive Date: 20190809
  Receipt Date: 20190809
  Transmission Date: 20191004
  Serious: Yes (Other)
  Sender: FDA-Public Use
  Company Number: JP-AMGEN-JPNSP2019126116

PATIENT
  Age: 65 Year
  Sex: Male

DRUGS (7)
  1. DEXAMETHAZONE [Suspect]
     Active Substance: DEXAMETHASONE
     Dosage: 20 MICROGRAM/SQ. METER, QWK
     Route: 041
     Dates: start: 20160823, end: 20161015
  2. REVLIMID [Suspect]
     Active Substance: LENALIDOMIDE
     Dosage: 25 MILLIGRAM, QD
     Route: 048
     Dates: start: 20161019, end: 20161211
  3. VELCADE [Concomitant]
     Active Substance: BORTEZOMIB
     Indication: PLASMA CELL MYELOMA
     Dosage: UNK
     Route: 065
     Dates: start: 20151006, end: 20160312
  4. DEXAMETHAZONE [Suspect]
     Active Substance: DEXAMETHASONE
     Indication: PLASMA CELL MYELOMA
     Dosage: 20 MICROGRAM/SQ. METER, QWK
     Route: 041
     Dates: start: 20151006, end: 20160312
  5. KYPROLIS [Suspect]
     Active Substance: CARFILZOMIB
     Indication: PLASMA CELL MYELOMA
     Dosage: 54 MG/M2, QW
     Route: 041
     Dates: start: 20161019, end: 20161212
  6. REVLIMID [Suspect]
     Active Substance: LENALIDOMIDE
     Indication: PLASMA CELL MYELOMA
     Dosage: 1 UNK, QD
     Route: 048
     Dates: start: 20151027, end: 20160312
  7. DEXAMETHAZONE [Suspect]
     Active Substance: DEXAMETHASONE
     Dosage: 20 MICROGRAM/SQ. METER, QWK
     Route: 041
     Dates: start: 20161019, end: 20161102

REACTIONS (1)
  - Hepatitis B DNA increased [Recovered/Resolved]

NARRATIVE: CASE EVENT DATE: 20161116
